FAERS Safety Report 10190111 (Version 2)
Quarter: 2014Q3

REPORT INFORMATION
  Report Type: Spontaneous
  Country: DE (occurrence: DE)
  Receive Date: 20140522
  Receipt Date: 20140804
  Transmission Date: 20150326
  Serious: Yes (Hospitalization, Other)
  Sender: FDA-Public Use
  Company Number: DE-ELI_LILLY_AND_COMPANY-DE201405003078

PATIENT
  Age: 35 Year
  Sex: Female

DRUGS (8)
  1. ZYPREXA [Suspect]
     Active Substance: OLANZAPINE
     Dosage: UNK UNK, OTHER (5 IN THE MORNIGN 0 IN THE AFTERNOON AND 20MG IN THE EVENING
     Route: 048
  2. ZYPREXA [Suspect]
     Active Substance: OLANZAPINE
     Dosage: UNK, OTHER (2.5MG IN THE MORNIGN, 0IN THE AFTERNOON  20MG IN THE EVENING)
  3. OLANZAPINE. [Suspect]
     Active Substance: OLANZAPINE
     Dosage: 15 MG, EACH EVENING
     Route: 065
     Dates: start: 200909, end: 20110428
  4. ZYPREXA [Suspect]
     Active Substance: OLANZAPINE
     Indication: SCHIZOPHRENIA
     Dosage: UNK, UNKNOWN 2X5MG THEN LATER INT EH EVENING 7.5MG
     Route: 048
     Dates: start: 2003
  5. ZYPREXA [Suspect]
     Active Substance: OLANZAPINE
     Indication: SCHIZOPHRENIA
     Dosage: 20 MG, EACH EVENING
     Route: 065
     Dates: start: 200709, end: 200711
  6. OLANZAPINE. [Suspect]
     Active Substance: OLANZAPINE
     Indication: SCHIZOPHRENIA
     Dosage: 20 MG, EACH EVENING
     Route: 065
     Dates: start: 200711
  7. OLANZAPINE. [Suspect]
     Active Substance: OLANZAPINE
     Dosage: 10 MG, UNKNOWN
     Route: 048
     Dates: start: 20110429
  8. ASPIRIN. [Concomitant]
     Active Substance: ASPIRIN
     Dosage: 100 MG, UNKNOWN
     Route: 065
     Dates: start: 2002

REACTIONS (2)
  - Psychotic disorder [Unknown]
  - Breast cancer [Unknown]
